FAERS Safety Report 12863942 (Version 1)
Quarter: 2016Q4

REPORT INFORMATION
  Report Type: Spontaneous
  Country: US (occurrence: US)
  Receive Date: 20161019
  Receipt Date: 20161019
  Transmission Date: 20170207
  Serious: No
  Sender: FDA-Public Use
  Company Number: US-AMGEN-USASP2016140966

PATIENT
  Age: 46 Year
  Sex: Male

DRUGS (1)
  1. ENBREL [Suspect]
     Active Substance: ETANERCEPT
     Indication: RHEUMATOID ARTHRITIS
     Dosage: UNK UNK, EACH WEEK
     Route: 065
     Dates: start: 2016

REACTIONS (6)
  - Sleep disorder due to a general medical condition [Unknown]
  - Injection site mass [Unknown]
  - Injection site pain [Unknown]
  - Irritability [Unknown]
  - Injection site erythema [Unknown]
  - Hypersensitivity [Unknown]

NARRATIVE: CASE EVENT DATE: 2016
